FAERS Safety Report 11821940 (Version 1)
Quarter: 2015Q4

REPORT INFORMATION
  Report Type: Spontaneous
  Country: US (occurrence: US)
  Receive Date: 20151210
  Receipt Date: 20151210
  Transmission Date: 20160305
  Serious: No
  Sender: FDA-Public Use
  Company Number: US-JNJFOC-20150603861

PATIENT
  Sex: Female
  Weight: 62 kg

DRUGS (16)
  1. IMBRUVICA [Suspect]
     Active Substance: IBRUTINIB
     Indication: CHRONIC LYMPHOCYTIC LEUKAEMIA
     Route: 048
     Dates: start: 20150303, end: 20150427
  2. CALCIUM [Concomitant]
     Active Substance: CALCIUM
  3. RANITIDINE [Concomitant]
     Active Substance: RANITIDINE\RANITIDINE HYDROCHLORIDE
  4. VITAMIN D [Concomitant]
     Active Substance: CHOLECALCIFEROL
  5. ASPIRIN. [Concomitant]
     Active Substance: ASPIRIN
  6. BROMOCRIPTINE MESYLATE [Concomitant]
     Active Substance: BROMOCRIPTINE MESYLATE
  7. SYNTHROID [Concomitant]
     Active Substance: LEVOTHYROXINE SODIUM
  8. VITAMIN C [Concomitant]
     Active Substance: ASCORBIC ACID
  9. FERROUS SULFATE [Concomitant]
     Active Substance: FERROUS SULFATE\FERROUS SULFATE, DRIED
  10. ALLEGRA [Concomitant]
     Active Substance: FEXOFENADINE HYDROCHLORIDE
  11. DEPAKOTE [Concomitant]
     Active Substance: DIVALPROEX SODIUM
  12. IMBRUVICA [Suspect]
     Active Substance: IBRUTINIB
     Indication: CHRONIC LYMPHOCYTIC LEUKAEMIA
     Dosage: REPORTED AS DRUG DISCONTINUED, NO DATE PROVIDED
     Route: 048
     Dates: start: 20150519
  13. RISPERIDONE. [Concomitant]
     Active Substance: RISPERIDONE
  14. IMBRUVICA [Suspect]
     Active Substance: IBRUTINIB
     Indication: CHRONIC LYMPHOCYTIC LEUKAEMIA
     Dosage: PER NARRATIVE, REPORTED AS IBRUTINIB THERAPY CONTINUED AT 420 MG DAILY. DATES NOT PROVIDED.
     Route: 048
  15. IMBRUVICA [Suspect]
     Active Substance: IBRUTINIB
     Indication: CHRONIC LYMPHOCYTIC LEUKAEMIA
     Route: 048
     Dates: start: 201502
  16. CRANBERRY EXTRACT [Concomitant]
     Active Substance: CRANBERRY JUICE

REACTIONS (14)
  - Contusion [Recovering/Resolving]
  - Laboratory test abnormal [Recovered/Resolved]
  - Epistaxis [Unknown]
  - Incorrect dose administered [Unknown]
  - Urinary tract infection [Unknown]
  - Weight decreased [Not Recovered/Not Resolved]
  - Rash [Recovering/Resolving]
  - Skin lesion [Unknown]
  - Dry skin [Not Recovered/Not Resolved]
  - Skin mass [Recovering/Resolving]
  - Rectal haemorrhage [Unknown]
  - Haemorrhage [Unknown]
  - Haematochezia [Recovered/Resolved]
  - Gingival bleeding [Unknown]

NARRATIVE: CASE EVENT DATE: 2015
